APPROVED DRUG PRODUCT: CANDESARTAN CILEXETIL AND HYDROCHLOROTHIAZIDE
Active Ingredient: CANDESARTAN CILEXETIL; HYDROCHLOROTHIAZIDE
Strength: 16MG;12.5MG
Dosage Form/Route: TABLET;ORAL
Application: A202965 | Product #001 | TE Code: AB
Applicant: SENORES PHARMACEUTICALS INC
Approved: Jun 3, 2013 | RLD: No | RS: No | Type: RX